FAERS Safety Report 6721372-9 (Version None)
Quarter: 2010Q2

REPORT INFORMATION
  Report Type: 
  Country: None (occurrence: None)
  Receive Date: 20100510
  Receipt Date: 20100503
  Transmission Date: 20101027
  Serious: Yes (Other)
  Sender: FDA-Public Use
  Company Number: 2010SP025224

PATIENT
  Age: 61 Year
  Sex: Male

DRUGS (10)
  1. MIRTAZAPINE [Suspect]
     Indication: DEPRESSION
     Dosage: 15 MG; QD; PO
     Route: 048
     Dates: start: 20100401, end: 20100411
  2. DEPAKOTE [Suspect]
     Indication: DEPRESSION
     Dosage: 250 MG; TID; PO
     Route: 048
     Dates: start: 20100401, end: 20100411
  3. XANAX [Concomitant]
  4. TERCIAN [Concomitant]
  5. FORLAX [Concomitant]
  6. GLUCOPHAGE [Concomitant]
  7. GLYBURIDE [Concomitant]
  8. KARDEGIC [Concomitant]
  9. DILTIAZEM [Concomitant]
  10. TRIATEC [Concomitant]

REACTIONS (1)
  - VASCULITIS [None]
